FAERS Safety Report 4664629-8 (Version None)
Quarter: 2005Q2

REPORT INFORMATION
  Report Type: 
  Country: None (occurrence: None)
  Receive Date: 20050518
  Receipt Date: 20050322
  Transmission Date: 20051028
  Serious: Yes (Hospitalization)
  Sender: FDA-Public Use
  Company Number: JP-ROCHE-399858

PATIENT
  Age: 29 Year
  Sex: Female

DRUGS (5)
  1. TAMIFLU [Suspect]
     Route: 048
     Dates: start: 20050228, end: 20050228
  2. TAMIFLU [Suspect]
     Route: 048
     Dates: start: 20050301, end: 20050301
  3. SELBEX [Concomitant]
     Dosage: FIRST THERAPY: 28-28 FEB 2005- 50MG, 3/1DAY, TDD- 150MG SECOND THERAPY: 1-1MARCH 2005- 50MG 1/1DAY,+
     Route: 048
     Dates: start: 20050228, end: 20050301
  4. MUCODYNE [Concomitant]
     Dosage: FIRST THERAPY: 28 FEB-1 MAR 2005- 0.5GRAM 3/1DAY, TDD 1.5 GRAM SECOND THERAPY:(DOSAGE LOWERED) 0.5G+
     Route: 048
     Dates: start: 20050228, end: 20050301
  5. CALONAL [Concomitant]
     Route: 048
     Dates: start: 20050228

REACTIONS (1)
  - ENTEROCOLITIS HAEMORRHAGIC [None]
